FAERS Safety Report 6581404-8 (Version None)
Quarter: 2010Q1

REPORT INFORMATION
  Report Type: 
  Country: None (occurrence: None)
  Receive Date: 20100215
  Receipt Date: 20100209
  Transmission Date: 20100710
  Serious: Yes (Hospitalization)
  Sender: FDA-Public Use
  Company Number: A0618086A

PATIENT
  Age: 54 Year
  Sex: Male

DRUGS (8)
  1. ADVAIR DISKUS 100/50 [Suspect]
     Indication: ASTHMA
     Dosage: 1PUFF TWICE PER DAY
     Route: 055
     Dates: start: 20020101
  2. SEREVENT [Suspect]
     Indication: ASTHMA
     Dosage: 1PUFF PER DAY
     Route: 055
     Dates: start: 20000101
  3. ADVAIR DISKUS 100/50 [Suspect]
     Dosage: 1PUFF TWICE PER DAY
     Route: 055
     Dates: start: 20100203, end: 20100207
  4. RHYTHMOL [Concomitant]
  5. ATENOLOL [Concomitant]
     Indication: ATRIAL FIBRILLATION
  6. VERAPAMIL [Concomitant]
     Indication: ATRIAL FIBRILLATION
  7. ALBUTEROL [Concomitant]
  8. UNSPECIFIED TREATMENT [Concomitant]

REACTIONS (10)
  - ASTHMA [None]
  - FATIGUE [None]
  - FEELING ABNORMAL [None]
  - FEELING JITTERY [None]
  - HEART RATE INCREASED [None]
  - HUNGER [None]
  - LYMPHADENOPATHY [None]
  - SWELLING FACE [None]
  - WEIGHT DECREASED [None]
  - WITHDRAWAL SYNDROME [None]
